FAERS Safety Report 20987042 (Version 2)
Quarter: 2022Q2

REPORT INFORMATION
  Report Type: Report from Study
  Country: IL (occurrence: IL)
  Receive Date: 20220621
  Receipt Date: 20220624
  Transmission Date: 20220721
  Serious: Yes (Hospitalization, Other)
  Sender: FDA-Public Use
  Company Number: IL-BAYER-2022A086408

PATIENT
  Age: 58 Year
  Sex: Female

DRUGS (11)
  1. BETAFERON [Suspect]
     Active Substance: INTERFERON BETA-1B
     Dosage: UNK
     Dates: start: 20060123
  2. LEVOTHYROXINE [Concomitant]
     Active Substance: LEVOTHYROXINE
  3. ASPIRIN [Concomitant]
     Active Substance: ASPIRIN
  4. LIPITOR [Concomitant]
     Active Substance: ATORVASTATIN CALCIUM
  5. CYMBALTA [Concomitant]
     Active Substance: DULOXETINE HYDROCHLORIDE
  6. GABAPENTIN [Concomitant]
     Active Substance: GABAPENTIN
  7. TEGRETOL [Concomitant]
     Active Substance: CARBAMAZEPINE
  8. BACLOFEN [Concomitant]
     Active Substance: BACLOFEN
  9. CADEX [BICALUTAMIDE] [Concomitant]
  10. AMLODIPINE [Concomitant]
     Active Substance: AMLODIPINE BESYLATE
  11. BISOPROLOL FUMARATE [Concomitant]
     Active Substance: BISOPROLOL FUMARATE

REACTIONS (2)
  - Abdominal abscess [Not Recovered/Not Resolved]
  - Pyrexia [Not Recovered/Not Resolved]
